FAERS Safety Report 8422335-8 (Version None)
Quarter: 2012Q2

REPORT INFORMATION
  Report Type: 
  Country: None (occurrence: None)
  Receive Date: 20120608
  Receipt Date: 20120603
  Transmission Date: 20120825
  Serious: Yes (Other)
  Sender: FDA-Public Use
  Company Number: US-TEVA-341370USA

PATIENT
  Age: 65 Year
  Sex: Male

DRUGS (2)
  1. TREANDA [Suspect]
     Indication: B-CELL LYMPHOMA
     Route: 042
  2. RITUXIMAB [Suspect]
     Indication: B-CELL LYMPHOMA

REACTIONS (4)
  - HYPERTENSION [None]
  - BLOOD PRESSURE SYSTOLIC INCREASED [None]
  - WHEEZING [None]
  - TACHYCARDIA [None]
